FAERS Safety Report 25597533 (Version 1)
Quarter: 2025Q3

REPORT INFORMATION
  Report Type: Spontaneous
  Country: EU (occurrence: EU)
  Receive Date: 20250723
  Receipt Date: 20250723
  Transmission Date: 20251020
  Serious: Yes (Other)
  Sender: BRACCO
  Company Number: None

PATIENT
  Sex: Female

DRUGS (1)
  1. PROHANCE [Suspect]
     Active Substance: GADOTERIDOL

REACTIONS (16)
  - Lipoedema [Unknown]
  - Hallucination [Unknown]
  - Visual impairment [Unknown]
  - Vision blurred [Unknown]
  - Dizziness [Unknown]
  - Headache [Unknown]
  - Oedema [Unknown]
  - Hormone level abnormal [Unknown]
  - Hyperkeratosis [Unknown]
  - Chronic fatigue syndrome [Unknown]
  - Nausea [Unknown]
  - Diarrhoea [Unknown]
  - Diplopia [Unknown]
  - Fatigue [Unknown]
  - Sleep disorder [Unknown]
  - Skin papilloma [Unknown]
